FAERS Safety Report 8063064-2 (Version None)
Quarter: 2012Q1

REPORT INFORMATION
  Report Type: 
  Country: None (occurrence: None)
  Receive Date: 20120123
  Receipt Date: 20120113
  Transmission Date: 20120608
  Serious: Yes (Hospitalization, Other)
  Sender: FDA-Public Use
  Company Number: US-BAYER-2011-031543

PATIENT
  Age: 23 Year
  Sex: Female
  Weight: 58.957 kg

DRUGS (5)
  1. YASMIN [Suspect]
     Indication: ACNE
     Dosage: UNK
     Route: 048
     Dates: start: 20071201, end: 20090301
  2. IBUPROFEN [Concomitant]
  3. YAZ [Suspect]
     Dosage: UNK
     Route: 048
     Dates: start: 20071201, end: 20090301
  4. YAZ [Suspect]
     Indication: ACNE
     Dosage: UNK
     Dates: start: 20050301
  5. ACETAMINOPHEN [Concomitant]
     Indication: PAIN
     Dosage: UNK UNK, BID
     Dates: start: 20090311, end: 20090315

REACTIONS (5)
  - WEIGHT INCREASED [None]
  - DEEP VEIN THROMBOSIS [None]
  - PULMONARY EMBOLISM [None]
  - LOCAL SWELLING [None]
  - PAIN IN EXTREMITY [None]
